FAERS Safety Report 7285241-0 (Version None)
Quarter: 2011Q1

REPORT INFORMATION
  Report Type: 
  Country: None (occurrence: None)
  Receive Date: 20110209
  Receipt Date: 20110207
  Transmission Date: 20110831
  Serious: No
  Sender: FDA-Public Use
  Company Number: DL2011-0099

PATIENT
  Age: 18 Year
  Sex: Female

DRUGS (6)
  1. AZITHROMYCIN [Concomitant]
  2. MISOPROSTOL [Suspect]
     Dosage: 800 MCG, BUCCAL
     Route: 002
     Dates: start: 20101208
  3. MISOPROSTOL [Suspect]
     Dosage: 800 MCG, BUCCAL
     Route: 002
     Dates: start: 20101210
  4. MIFEPREX [Suspect]
     Indication: ABORTION INDUCED
     Dosage: 200 MG, ORAL
     Route: 048
     Dates: start: 20101202
  5. MIFEPREX [Suspect]
     Indication: ABORTION INDUCED
     Dosage: 200 MG, ORAL
     Route: 048
     Dates: start: 20101206
  6. DOXYCYCLINE [Concomitant]

REACTIONS (5)
  - ABORTION INCOMPLETE [None]
  - DIZZINESS [None]
  - HAEMORRHAGE [None]
  - VOMITING [None]
  - ANAEMIA [None]
